FAERS Safety Report 24880402 (Version 1)
Quarter: 2025Q1

REPORT INFORMATION
  Report Type: Spontaneous
  Country: CA (occurrence: IN)
  Receive Date: 20250123
  Receipt Date: 20250123
  Transmission Date: 20250408
  Serious: Yes (Other)
  Sender: INTRA-CELLULAR THERAPIES
  Company Number: CA-INTRA-CELLULAR THERAPIES, INC.-2025ICT00034

PATIENT

DRUGS (2)
  1. CAPLYTA [Suspect]
     Active Substance: LUMATEPERONE
  2. CARIPRAZINE [Concomitant]
     Active Substance: CARIPRAZINE

REACTIONS (1)
  - Oculogyric crisis [Recovered/Resolved]
